FAERS Safety Report 22221155 (Version 10)
Quarter: 2024Q2

REPORT INFORMATION
  Report Type: Report from Study
  Country: CA (occurrence: CA)
  Receive Date: 20230418
  Receipt Date: 20240624
  Transmission Date: 20240716
  Serious: Yes (Other)
  Sender: FDA-Public Use
  Company Number: CA-002147023-NVSC2023CA018041

PATIENT
  Age: 74 Year
  Sex: Female

DRUGS (5)
  1. COSENTYX [Suspect]
     Active Substance: SECUKINUMAB
     Indication: Psoriasis
     Dosage: 300 MG, QW (WEEKS 0, 1, 2, 3, AND 4, FREQUENCY: WEEKLY)
     Route: 058
     Dates: start: 20230124
  2. COSENTYX [Suspect]
     Active Substance: SECUKINUMAB
     Dosage: 300 MG, QMO
     Route: 058
  3. COSENTYX [Suspect]
     Active Substance: SECUKINUMAB
     Dosage: UNK
     Route: 065
     Dates: start: 20230214
  4. COSENTYX [Suspect]
     Active Substance: SECUKINUMAB
     Dosage: 300 MG, QMO
     Route: 058
  5. METHOTREXATE [Concomitant]
     Active Substance: METHOTREXATE
     Indication: Product used for unknown indication
     Dosage: UNK
     Route: 048

REACTIONS (18)
  - Conjunctival haemorrhage [Recovering/Resolving]
  - Blood pressure increased [Unknown]
  - Arthralgia [Recovered/Resolved]
  - Pain in extremity [Unknown]
  - Dry eye [Unknown]
  - Fine motor skill dysfunction [Unknown]
  - Trigger finger [Unknown]
  - Visual impairment [Unknown]
  - Nasal congestion [Unknown]
  - Rhinorrhoea [Unknown]
  - Sinus disorder [Unknown]
  - Nasopharyngitis [Unknown]
  - Hypersensitivity [Unknown]
  - Rash [Unknown]
  - Dermatitis [Unknown]
  - Rash macular [Unknown]
  - Wrong technique in product usage process [Unknown]
  - Therapeutic response shortened [Unknown]

NARRATIVE: CASE EVENT DATE: 20230101
